FAERS Safety Report 17420658 (Version 2)
Quarter: 2020Q4

REPORT INFORMATION
  Report Type: Report from Study
  Country: BR (occurrence: BR)
  Receive Date: 20200214
  Receipt Date: 20201023
  Transmission Date: 20210113
  Serious: Yes (Hospitalization)
  Sender: FDA-Public Use
  Company Number: BR-ASTRAZENECA-2019SE86492

PATIENT
  Age: 26181 Day
  Sex: Male

DRUGS (28)
  1. CARBOPLATIN. [Suspect]
     Active Substance: CARBOPLATIN
     Indication: NON-SMALL CELL LUNG CANCER
     Dosage: 2.0 AUC
     Route: 065
     Dates: start: 20190521, end: 20190521
  2. CARBOPLATIN. [Suspect]
     Active Substance: CARBOPLATIN
     Indication: NON-SMALL CELL LUNG CANCER
     Dosage: 2.0 AUC
     Route: 065
     Dates: start: 20190605, end: 20190605
  3. FORMOTEROL [Concomitant]
     Active Substance: FORMOTEROL
     Indication: CHRONIC OBSTRUCTIVE PULMONARY DISEASE
     Route: 055
  4. FORMOTEROL [Concomitant]
     Active Substance: FORMOTEROL
     Indication: DYSPNOEA
     Route: 055
  5. PACLITAXEL. [Suspect]
     Active Substance: PACLITAXEL
     Indication: NON-SMALL CELL LUNG CANCER
     Dosage: 50.0 MG/M2
     Route: 065
     Dates: start: 20190514, end: 20190514
  6. PACLITAXEL. [Suspect]
     Active Substance: PACLITAXEL
     Indication: NON-SMALL CELL LUNG CANCER
     Dosage: 50.0 MG/M2
     Route: 065
     Dates: start: 20190529, end: 20190529
  7. ROUVASTATIN [Concomitant]
     Active Substance: ROSUVASTATIN
     Indication: CAROTID ARTERY STENOSIS
     Route: 048
     Dates: start: 20190619, end: 20190623
  8. DOXAZOSIN [Concomitant]
     Active Substance: DOXAZOSIN MESYLATE
     Indication: BENIGN PROSTATIC HYPERPLASIA
     Route: 048
  9. DIMENHYDRINATE. [Concomitant]
     Active Substance: DIMENHYDRINATE
     Indication: NAUSEA
     Route: 048
     Dates: start: 20190520
  10. AKYNZEO [Concomitant]
     Active Substance: NETUPITANT\PALONOSETRON HYDROCHLORIDE
     Indication: CHEMOTHERAPY
     Dosage: 300.56MG EVERY CYCLE
     Route: 042
     Dates: start: 20190605
  11. SEKI SYRUP [Concomitant]
     Indication: COUGH
     Route: 048
     Dates: start: 20190606, end: 20190609
  12. DURVALUMAB. [Suspect]
     Active Substance: DURVALUMAB
     Indication: NON-SMALL CELL LUNG CANCER
     Route: 042
     Dates: start: 20200514, end: 20200514
  13. PACLITAXEL. [Suspect]
     Active Substance: PACLITAXEL
     Indication: NON-SMALL CELL LUNG CANCER
     Dosage: 50.0 MG/M2
     Route: 065
     Dates: start: 20190605, end: 20190605
  14. RADIATION THERAPY [Suspect]
     Active Substance: RADIATION THERAPY
     Indication: NON-SMALL CELL LUNG CANCER STAGE III
     Dosage: DOSE PER FRACTION: 2 GY, NO OF FRACTION DOSES TOTAL) 30,
     Route: 065
  15. ROUVASTATIN [Concomitant]
     Active Substance: ROSUVASTATIN
     Indication: CAROTID ARTERY STENOSIS
     Route: 048
     Dates: end: 20190609
  16. FINASTERIDE. [Concomitant]
     Active Substance: FINASTERIDE
     Indication: BENIGN PROSTATIC HYPERPLASIA
     Route: 048
  17. RANITIDINE. [Concomitant]
     Active Substance: RANITIDINE
     Indication: CHEMOTHERAPY
     Dosage: 50.0MG EVERY CYCLE
     Route: 042
     Dates: start: 20190521
  18. CARBOPLATIN. [Suspect]
     Active Substance: CARBOPLATIN
     Indication: NON-SMALL CELL LUNG CANCER
     Dosage: 2.0 AUC
     Route: 065
     Dates: start: 20190529, end: 20190529
  19. DIMENHYDRINATE. [Concomitant]
     Active Substance: DIMENHYDRINATE
     Indication: NAUSEA
     Route: 048
     Dates: start: 20190518, end: 20190519
  20. ONDANSETRON [Concomitant]
     Active Substance: ONDANSETRON
     Indication: DYSPEPSIA
     Route: 042
     Dates: start: 20190610, end: 20190611
  21. EMEND [Concomitant]
     Active Substance: APREPITANT
     Indication: CHEMOTHERAPY
     Dosage: 150.0MG EVERY CYCLE
     Route: 042
     Dates: start: 20190521
  22. CARBOPLATIN. [Suspect]
     Active Substance: CARBOPLATIN
     Indication: NON-SMALL CELL LUNG CANCER
     Dosage: 2.0 AUC
     Route: 065
     Dates: start: 20190514, end: 20190514
  23. PACLITAXEL. [Suspect]
     Active Substance: PACLITAXEL
     Indication: NON-SMALL CELL LUNG CANCER
     Dosage: 50.0 MG/M2
     Route: 065
     Dates: start: 20190521, end: 20190521
  24. DEXAMETHASONE. [Concomitant]
     Active Substance: DEXAMETHASONE
     Indication: CHEMOTHERAPY
     Dosage: 10.0MG EVERY CYCLE
     Route: 042
     Dates: start: 20190521
  25. ONDANSETRON [Concomitant]
     Active Substance: ONDANSETRON
     Indication: CHEMOTHERAPY
     Route: 042
     Dates: start: 20190521
  26. ONDANSETRON [Concomitant]
     Active Substance: ONDANSETRON
     Indication: CHEMOTHERAPY
     Route: 042
     Dates: start: 20190610, end: 20190611
  27. BECLOMETHASONE [Concomitant]
     Active Substance: BECLOMETHASONE
     Route: 055
  28. ONDANSETRON [Concomitant]
     Active Substance: ONDANSETRON
     Indication: DYSPEPSIA
     Route: 042
     Dates: start: 20190521

REACTIONS (1)
  - Febrile neutropenia [Recovered/Resolved]

NARRATIVE: CASE EVENT DATE: 20190609
